FAERS Safety Report 8326709-5 (Version None)
Quarter: 2012Q2

REPORT INFORMATION
  Report Type: 
  Country: None (occurrence: None)
  Receive Date: 20120501
  Receipt Date: 20120427
  Transmission Date: 20120825
  Serious: Yes (Other)
  Sender: FDA-Public Use
  Company Number: CHPA2010US13425

PATIENT
  Age: 55 Year
  Sex: Female
  Weight: 65.76 kg

DRUGS (5)
  1. VOLTAREN [Suspect]
     Dosage: 2 G, QD
     Route: 061
  2. VOLTAREN [Suspect]
     Indication: BACK PAIN
     Dosage: UNK, QID
     Route: 061
  3. WARFARIN SODIUM [Suspect]
     Dosage: UNK, UNK
  4. ASPIRIN [Suspect]
     Dosage: 81 MG, UNK
     Dates: start: 20120401
  5. VOLTAREN [Suspect]
     Dosage: UNK, ON AND OFF
     Route: 061

REACTIONS (4)
  - VAGINAL HAEMORRHAGE [None]
  - WRONG TECHNIQUE IN DRUG USAGE PROCESS [None]
  - OFF LABEL USE [None]
  - DRUG ADMINISTERED AT INAPPROPRIATE SITE [None]
